FAERS Safety Report 4899035-4 (Version None)
Quarter: 2006Q1

REPORT INFORMATION
  Report Type: 
  Country: None (occurrence: None)
  Receive Date: 20060202
  Receipt Date: 20060119
  Transmission Date: 20060701
  Serious: Yes (Death)
  Sender: FDA-Public Use
  Company Number: AT-JNJFOC-20060104209

PATIENT
  Sex: Female

DRUGS (13)
  1. RISPERDAL [Suspect]
     Indication: DEMENTIA
     Dosage: 0.5MG TAKEN IN THE MORNING AND AT NIGHT.
  2. BLOPRESS [Concomitant]
  3. CONCOR [Concomitant]
  4. ZURCAL [Concomitant]
  5. ARICEPT [Concomitant]
  6. SPASMOLYT [Concomitant]
  7. PANCREOFLAT [Concomitant]
  8. PANCREOFLAT [Concomitant]
  9. TOLVON [Concomitant]
  10. HYDAL [Concomitant]
     Dosage: REPORTED AS 4MG/8MG
  11. TEMESTA [Concomitant]
  12. THYREX [Concomitant]
  13. PROTAGENT [Concomitant]

REACTIONS (3)
  - EXTRAPYRAMIDAL DISORDER [None]
  - FALL [None]
  - PNEUMONIA [None]
